FAERS Safety Report 9297792 (Version 1)
Quarter: 2013Q2

REPORT INFORMATION
  Report Type: Spontaneous
  Country: CY (occurrence: CY)
  Receive Date: 20130520
  Receipt Date: 20130520
  Transmission Date: 20140414
  Serious: Yes (Other)
  Sender: FDA-Public Use
  Company Number: CY-BAYER-2013-061776

PATIENT
  Age: 68 Year
  Sex: Male

DRUGS (1)
  1. ULTRAVIST [Suspect]
     Indication: UNEVALUABLE INVESTIGATION
     Dosage: 100 ML, ONCE
     Dates: start: 20130516, end: 20130516

REACTIONS (1)
  - Endotracheal intubation [None]
